FAERS Safety Report 9896837 (Version 1)
Quarter: 2014Q1

REPORT INFORMATION
  Report Type: Spontaneous
  Country: PL (occurrence: PL)
  Receive Date: 20140213
  Receipt Date: 20140213
  Transmission Date: 20141002
  Serious: Yes (Hospitalization, Other)
  Sender: FDA-Public Use
  Company Number: PL-ROCHE-1344945

PATIENT
  Age: 72 Year
  Sex: Female

DRUGS (3)
  1. VEMURAFENIB [Suspect]
     Indication: MALIGNANT MELANOMA
     Route: 065
     Dates: start: 201304
  2. VEMURAFENIB [Suspect]
     Route: 065
  3. VEMURAFENIB [Suspect]
     Route: 065

REACTIONS (8)
  - Hypokalaemia [Recovering/Resolving]
  - Hepatotoxicity [Recovering/Resolving]
  - Hepatomegaly [Recovering/Resolving]
  - Seborrhoeic keratosis [Recovered/Resolved]
  - Conjunctivitis [Recovering/Resolving]
  - Fatigue [Recovered/Resolved]
  - Rash papular [Recovering/Resolving]
  - Decreased appetite [Unknown]
